FAERS Safety Report 9496813 (Version 1)
Quarter: 2013Q3

REPORT INFORMATION
  Report Type: Report from Study
  Country: US (occurrence: US)
  Receive Date: 20130904
  Receipt Date: 20130904
  Transmission Date: 20140515
  Serious: Yes (Death)
  Sender: FDA-Public Use
  Company Number: US-SANOFI-AVENTIS-2013SA087673

PATIENT
  Sex: Male

DRUGS (5)
  1. DOCETAXEL [Suspect]
     Indication: PROSTATE CANCER METASTATIC
     Route: 042
  2. ATRASENTAN HYDROCHLORIDE [Suspect]
     Indication: PROSTATE CANCER METASTATIC
     Route: 048
  3. SEROTONIN ANTAGONISTS [Concomitant]
  4. DEXAMETHASONE [Concomitant]
  5. PREDNISONE [Concomitant]

REACTIONS (1)
  - Death [Fatal]
